FAERS Safety Report 17825203 (Version 2)
Quarter: 2020Q3

REPORT INFORMATION
  Report Type: Spontaneous
  Country: US (occurrence: US)
  Receive Date: 20200526
  Receipt Date: 20200901
  Transmission Date: 20201102
  Serious: No
  Sender: FDA-Public Use
  Company Number: US-VERTEX PHARMACEUTICALS-2020-011344

PATIENT
  Age: 22 Year
  Sex: Female
  Weight: 54 kg

DRUGS (17)
  1. TRIKAFTA [Suspect]
     Active Substance: ELEXACAFTOR\IVACAFTOR\TEZACAFTOR
     Indication: CYSTIC FIBROSIS
     Dosage: 2 ORANGE TABS100 MG ELEXACAFTOR/ 50 MG TEZACAFTOR/ 75 MG IVACAFTOR AM; 1 BLUE TAB150MG IVACAFTOR PM
     Route: 048
     Dates: start: 20200511
  2. VITAMIN D [COLECALCIFEROL] [Concomitant]
     Active Substance: CHOLECALCIFEROL
  3. TOBI [Concomitant]
     Active Substance: TOBRAMYCIN
     Dosage: 28MG
  4. VITAMIN A [RETINOL;TOCOPHEROL] [Concomitant]
     Dosage: 10000 UNIT
  5. PREVACID [Concomitant]
     Active Substance: LANSOPRAZOLE
  6. MEPHYTON [Concomitant]
     Active Substance: PHYTONADIONE
  7. SODIUM CHLORIDE. [Concomitant]
     Active Substance: SODIUM CHLORIDE
  8. VENTOLIN HFA [Concomitant]
     Active Substance: ALBUTEROL SULFATE
  9. CREON [Concomitant]
     Active Substance: PANCRELIPASE AMYLASE\PANCRELIPASE LIPASE\PANCRELIPASE PROTEASE
  10. ADMELOG [Concomitant]
     Active Substance: INSULIN LISPRO
  11. PROBIOTIC ACIDOPHILUS [LACTOBACILLUS ACIDOPHILUS] [Concomitant]
     Dosage: UNK
  12. PROPRANOLOL HCL [Concomitant]
     Active Substance: PROPRANOLOL HYDROCHLORIDE
     Dosage: 10 MG
  13. PULMOZYME [Concomitant]
     Active Substance: DORNASE ALFA
     Dosage: 2.5MG
  14. LACTASE [Concomitant]
     Active Substance: LACTASE
     Dosage: 3000 UNIT
     Route: 048
  15. IRON [Concomitant]
     Active Substance: IRON
     Dosage: 325MG
  16. URSODIOL. [Concomitant]
     Active Substance: URSODIOL
  17. BASAGLAR [Concomitant]
     Active Substance: INSULIN GLARGINE
     Dosage: UNK

REACTIONS (4)
  - Visual impairment [Unknown]
  - Insomnia [Unknown]
  - Blood glucose increased [Recovering/Resolving]
  - Headache [Recovered/Resolved]

NARRATIVE: CASE EVENT DATE: 2020
